FAERS Safety Report 10064474 (Version 3)
Quarter: 2014Q2

REPORT INFORMATION
  Report Type: Spontaneous
  Country: GB (occurrence: None)
  Receive Date: 20140404
  Receipt Date: 20140627
  Transmission Date: 20141212
  Serious: Yes (Other)
  Sender: FDA-Public Use
  Company Number: AUR-APL-2014-04079

PATIENT
  Age: 52 Year
  Sex: Male
  Weight: 89 kg

DRUGS (3)
  1. SIMVASTATIN [Suspect]
     Indication: PRODUCT USED FOR UNKNOWN INDICATION
     Route: 048
     Dates: start: 20140121, end: 20140318
  2. DOXAZOSIN (DOXAZOSIN) [Concomitant]
  3. RAMIPRIL (RAMIPRIL) [Concomitant]

REACTIONS (3)
  - Fatigue [None]
  - Myalgia [None]
  - Memory impairment [None]
